FAERS Safety Report 8913098 (Version 2)
Quarter: 2013Q1

REPORT INFORMATION
  Report Type: Spontaneous
  Country: US (occurrence: US)
  Receive Date: 20121116
  Receipt Date: 20130107
  Transmission Date: 20140127
  Serious: Yes (Other)
  Sender: FDA-Public Use
  Company Number: US-PFIZER INC-2012287184

PATIENT
  Age: 49 Year
  Sex: Female
  Weight: 89.8 kg

DRUGS (1)
  1. GEODON [Suspect]
     Dosage: 80 MG, 2X/DAY
     Route: 048

REACTIONS (3)
  - Multiple sclerosis relapse [Unknown]
  - Dysgraphia [Unknown]
  - Gait disturbance [Unknown]
